FAERS Safety Report 25352541 (Version 2)
Quarter: 2025Q3

REPORT INFORMATION
  Report Type: Spontaneous
  Country: US (occurrence: US)
  Receive Date: 20250523
  Receipt Date: 20250708
  Transmission Date: 20251021
  Serious: Yes (Hospitalization)
  Sender: AMGEN
  Company Number: US-AMGEN-USASP2025097659

PATIENT
  Age: 78 Year
  Sex: Male
  Weight: 97 kg

DRUGS (26)
  1. BLINCYTO [Suspect]
     Active Substance: BLINATUMOMAB
     Indication: Neuroendocrine carcinoma of the skin
     Route: 040
     Dates: start: 20250410, end: 20250413
  2. BLINCYTO [Suspect]
     Active Substance: BLINATUMOMAB
     Route: 040
     Dates: start: 20250413, end: 20250417
  3. BLINCYTO [Suspect]
     Active Substance: BLINATUMOMAB
     Route: 040
     Dates: start: 20250424
  4. ALLOPURINOL [Concomitant]
     Active Substance: ALLOPURINOL
     Dates: start: 202407
  5. ASPIRIN [Concomitant]
     Active Substance: ASPIRIN
     Dates: start: 2020
  6. DEXTROSE [Concomitant]
     Active Substance: DEXTROSE MONOHYDRATE
     Dates: start: 2021
  7. EMPAGLIFLOZIN [Concomitant]
     Active Substance: EMPAGLIFLOZIN
     Dates: start: 2021
  8. GABAPENTIN [Concomitant]
     Active Substance: GABAPENTIN
     Dates: start: 202408
  9. IBUPROFEN [Concomitant]
     Active Substance: IBUPROFEN
     Dates: start: 2015
  10. INSULIN GLARGINE [Concomitant]
     Active Substance: INSULIN GLARGINE
     Dates: start: 2015
  11. LORATADINE [Concomitant]
     Active Substance: LORATADINE
     Dates: start: 2021
  12. LEVOTHYROXINE [Concomitant]
     Active Substance: LEVOTHYROXINE
     Dates: start: 2020
  13. MAGNESIUM [Concomitant]
     Active Substance: MAGNESIUM
     Dates: start: 2020
  14. METFORMIN [Concomitant]
     Active Substance: METFORMIN HYDROCHLORIDE
     Dates: start: 2006
  15. DOCUSATE SODIUM [Concomitant]
     Active Substance: DOCUSATE SODIUM
     Dates: start: 202412
  16. ROSUVASTATIN [Concomitant]
     Active Substance: ROSUVASTATIN
     Dates: start: 20250414
  17. MUPIROCIN [Concomitant]
     Active Substance: MUPIROCIN
     Dates: start: 20250415
  18. NYSTATIN [Concomitant]
     Active Substance: NYSTATIN
     Dates: start: 20250416
  19. MENTHOL [Concomitant]
     Active Substance: MENTHOL
     Dates: start: 20250415
  20. Octinoxate;Oxybenzone;Petrolatum [Concomitant]
     Dates: start: 20250419
  21. PROCHLORPERAZINE [Concomitant]
     Active Substance: PROCHLORPERAZINE
     Dates: start: 20250422
  22. INSULIN LISPRO [Concomitant]
     Active Substance: INSULIN LISPRO
     Dates: start: 20250423
  23. MICONAZOLE [Concomitant]
     Active Substance: MICONAZOLE
     Dates: start: 20250423
  24. POTASSIUM CHLORIDE [Concomitant]
     Active Substance: POTASSIUM CHLORIDE
     Dates: start: 20250424
  25. MAGNESIUM SULFATE [Concomitant]
     Active Substance: MAGNESIUM SULFATE
     Dates: start: 20250424
  26. ACETAMINOPHEN [Concomitant]
     Active Substance: ACETAMINOPHEN
     Dates: start: 20250424

REACTIONS (3)
  - Immune effector cell-associated neurotoxicity syndrome [Recovered/Resolved]
  - Cytokine release syndrome [Recovered/Resolved]
  - Off label use [Unknown]

NARRATIVE: CASE EVENT DATE: 20250410
